FAERS Safety Report 5669049-5 (Version None)
Quarter: 2008Q1

REPORT INFORMATION
  Report Type: 
  Country: None (occurrence: None)
  Receive Date: 20080317
  Receipt Date: 20080303
  Transmission Date: 20080703
  Serious: Yes (Other)
  Sender: FDA-Public Use
  Company Number: US-AMGEN-QUU262665

PATIENT
  Sex: Female
  Weight: 97.6 kg

DRUGS (9)
  1. ENBREL [Suspect]
     Indication: RHEUMATOID ARTHRITIS
     Route: 058
     Dates: start: 20050128, end: 20080125
  2. FOLIC ACID [Concomitant]
     Dates: start: 20020429
  3. ZYRTEC [Concomitant]
  4. FERROUS SULFATE TAB [Concomitant]
     Dates: start: 20020429
  5. POTASSIUM CHLORIDE [Concomitant]
  6. METHOTREXATE [Concomitant]
     Dates: start: 20020429, end: 20080125
  7. ULTRAM [Concomitant]
  8. PREDNISONE TAB [Concomitant]
  9. DYAZIDE [Concomitant]

REACTIONS (10)
  - ABDOMINAL PAIN [None]
  - ATELECTASIS [None]
  - CHRONIC OBSTRUCTIVE PULMONARY DISEASE [None]
  - FACET JOINT SYNDROME [None]
  - HAEMATOCRIT DECREASED [None]
  - HAEMOGLOBIN DECREASED [None]
  - HIATUS HERNIA [None]
  - LUNG NEOPLASM [None]
  - METASTATIC SQUAMOUS CELL CARCINOMA [None]
  - RENAL CYST [None]
